FAERS Safety Report 9203462 (Version 3)
Quarter: 2013Q2

REPORT INFORMATION
  Report Type: Spontaneous
  Country: US (occurrence: US)
  Receive Date: 20130402
  Receipt Date: 20130626
  Transmission Date: 20140414
  Serious: No
  Sender: FDA-Public Use
  Company Number: US-PFIZER INC-2013102758

PATIENT
  Age: 66 Year
  Sex: Female
  Weight: 41.7 kg

DRUGS (1)
  1. PREMARIN [Suspect]
     Dosage: UNK
     Dates: start: 1993

REACTIONS (1)
  - Fungal infection [Unknown]
